FAERS Safety Report 8385169-9 (Version None)
Quarter: 2012Q2

REPORT INFORMATION
  Report Type: 
  Country: None (occurrence: None)
  Receive Date: 20120525
  Receipt Date: 20120514
  Transmission Date: 20120825
  Serious: Yes (Other)
  Sender: FDA-Public Use
  Company Number: BR-AMGEN-BRASP2012031268

PATIENT
  Age: 48 Year
  Sex: Female
  Weight: 51 kg

DRUGS (1)
  1. ENBREL [Suspect]
     Indication: RHEUMATOID ARTHRITIS
     Dosage: 50 MG, WEEKLY
     Route: 058
     Dates: start: 20080201, end: 20120326

REACTIONS (3)
  - URINARY TRACT INFECTION [None]
  - PYREXIA [None]
  - PAIN [None]
